FAERS Safety Report 11142541 (Version 19)
Quarter: 2017Q2

REPORT INFORMATION
  Report Type: Report from Study
  Country: US (occurrence: US)
  Receive Date: 20150527
  Receipt Date: 20170403
  Transmission Date: 20170829
  Serious: Yes (Hospitalization, Other)
  Sender: FDA-Public Use
  Company Number: US-ACTELION-A-US2015-113783

PATIENT
  Age: 68 Year
  Sex: Female
  Weight: 97.96 kg

DRUGS (10)
  1. VELETRI [Suspect]
     Active Substance: EPOPROSTENOL
     Dosage: UNK
     Route: 042
  2. WARFARIN [Concomitant]
     Active Substance: WARFARIN
  3. DILTIAZEM. [Concomitant]
     Active Substance: DILTIAZEM
  4. COUMADIN [Concomitant]
     Active Substance: WARFARIN SODIUM
  5. VELETRI [Suspect]
     Active Substance: EPOPROSTENOL
     Indication: PULMONARY ARTERIAL HYPERTENSION
     Dosage: 24 NG/KG, PER MIN
     Route: 042
     Dates: start: 20100830
  6. VELETRI [Suspect]
     Active Substance: EPOPROSTENOL
     Dosage: 23 NG/KG, PER MIN
     Route: 042
     Dates: start: 20100830
  7. OXYGEN. [Concomitant]
     Active Substance: OXYGEN
     Dosage: 4 L/MIN, UNK
  8. VELETRI [Suspect]
     Active Substance: EPOPROSTENOL
     Dosage: UNK
     Route: 042
     Dates: start: 20100920
  9. REVATIO [Concomitant]
     Active Substance: SILDENAFIL CITRATE
     Dosage: 23 NG/KG, PER MIN
  10. VELETRI [Suspect]
     Active Substance: EPOPROSTENOL
     Dosage: 18 NG/KG, PER MIN
     Route: 042

REACTIONS (41)
  - Radioactive iodine therapy [Unknown]
  - Sarcoidosis [Unknown]
  - Insomnia [Unknown]
  - Viral infection [Unknown]
  - Nausea [Unknown]
  - Pain in extremity [Recovering/Resolving]
  - Pain in jaw [Unknown]
  - Abdominal pain upper [Unknown]
  - Enzyme level increased [Unknown]
  - Prothrombin time prolonged [Unknown]
  - Dyspnoea [Unknown]
  - Pyrexia [Unknown]
  - Hyperhidrosis [Unknown]
  - Oxygen saturation decreased [Unknown]
  - Mineral supplementation [Unknown]
  - Decreased appetite [Unknown]
  - Hypoxia [Unknown]
  - Pain [Unknown]
  - Catheter placement [Unknown]
  - Vision blurred [Unknown]
  - Haemorrhage [Recovering/Resolving]
  - Dysphonia [Unknown]
  - Bronchitis [Unknown]
  - Muscle spasms [Unknown]
  - Skin fissures [Unknown]
  - Feeling abnormal [Unknown]
  - Diarrhoea [Unknown]
  - Central venous catheterisation [Unknown]
  - Night sweats [Unknown]
  - Tooth loss [Unknown]
  - Vomiting [Unknown]
  - Platelet count decreased [Unknown]
  - Thyroxine decreased [Unknown]
  - Asthenia [Unknown]
  - Anaemia [Unknown]
  - Rash [Unknown]
  - Renal cancer [Unknown]
  - Fatigue [Unknown]
  - Hot flush [Unknown]
  - Dizziness [Unknown]
  - Headache [Unknown]

NARRATIVE: CASE EVENT DATE: 201505
